FAERS Safety Report 10175137 (Version 2)
Quarter: 2014Q2

REPORT INFORMATION
  Report Type: Report from Study
  Country: US (occurrence: US)
  Receive Date: 20140515
  Receipt Date: 20140515
  Transmission Date: 20141212
  Serious: Yes (Hospitalization)
  Sender: FDA-Public Use
  Company Number: US-BRISTOL-MYERS SQUIBB COMPANY-20659231

PATIENT
  Age: 62 Year
  Sex: Female

DRUGS (29)
  1. PACLITAXEL [Suspect]
     Indication: BREAST CANCER METASTATIC
     Dosage: INTPTD ON 26MAR14
     Route: 042
     Dates: start: 20130925
  2. BLINDED: BEVACIZUMAB [Suspect]
     Indication: BREAST CANCER METASTATIC
     Dosage: INTPTD ON 26MAR2014
     Route: 042
     Dates: start: 20130925
  3. BLINDED: PLACEBO [Suspect]
     Indication: BREAST CANCER METASTATIC
     Route: 042
     Dates: start: 20130925
  4. BENADRYL [Concomitant]
     Indication: SEASONAL ALLERGY
     Dates: start: 20100428
  5. CELEBREX [Concomitant]
     Indication: MUSCULOSKELETAL PAIN
  6. ACETAMINOPHEN + HYDROCODONE [Concomitant]
     Indication: MUSCULOSKELETAL PAIN
     Dates: start: 20100428
  7. LEXAPRO [Concomitant]
     Indication: ANXIETY
     Dates: start: 20111011
  8. NEURONTIN [Concomitant]
     Indication: NEUROPATHY PERIPHERAL
     Dates: start: 20100521
  9. NEURONTIN [Concomitant]
     Indication: HOT FLUSH
     Dates: start: 20100521
  10. NEXIUM [Concomitant]
     Indication: GASTROINTESTINAL ULCER
     Dates: start: 20111011
  11. SKELAXIN [Concomitant]
     Indication: MUSCULOSKELETAL PAIN
     Dates: start: 20100428
  12. SUCRALFATE [Concomitant]
     Indication: GASTROOESOPHAGEAL REFLUX DISEASE
     Dates: start: 20120207
  13. OMEGA-3 [Concomitant]
     Indication: NUTRITIONAL SUPPLEMENTATION
     Dates: start: 20130428
  14. VITAMIN D3 [Concomitant]
     Indication: NUTRITIONAL SUPPLEMENTATION
     Dates: start: 20100428
  15. DEXAMETHASONE [Concomitant]
     Indication: PREMEDICATION
     Dates: start: 20130925
  16. RANITIDINE [Concomitant]
     Indication: PREMEDICATION
     Dates: start: 20130925
  17. CALCIUM CARBONATE [Concomitant]
     Indication: HYPOCALCAEMIA
     Dates: start: 20131009
  18. BIOTIN [Concomitant]
     Indication: DRY MOUTH
     Dates: start: 20140102
  19. ZYRTEC [Concomitant]
     Indication: HYPERSENSITIVITY
  20. ZYRTEC [Concomitant]
     Indication: INCREASED UPPER AIRWAY SECRETION
  21. VITAMIN B COMPLEX + C [Concomitant]
  22. DIPHENHYDRAMINE [Concomitant]
  23. MAGIC MOUTHWASH [Concomitant]
  24. EVOXAC [Concomitant]
     Indication: DRY MOUTH
     Dates: start: 20140120
  25. SYNVISC [Concomitant]
     Indication: ARTHRALGIA
     Dates: start: 20140201
  26. VALTREX [Concomitant]
     Indication: MUCOSAL INFLAMMATION
     Dates: start: 20140312
  27. CAPHOSOL [Concomitant]
     Indication: DRY MOUTH
     Dates: start: 20140312
  28. AUGMENTIN [Concomitant]
     Indication: INFECTION
     Dates: start: 20140409
  29. FLAGYL [Concomitant]
     Indication: INFECTION
     Dates: start: 20140409

REACTIONS (2)
  - Abdominal abscess [Not Recovered/Not Resolved]
  - Cellulitis [Not Recovered/Not Resolved]
